FAERS Safety Report 15656495 (Version 1)
Quarter: 2018Q4

REPORT INFORMATION
  Report Type: Spontaneous
  Country: FR (occurrence: FR)
  Receive Date: 20181126
  Receipt Date: 20181126
  Transmission Date: 20190205
  Serious: Yes (Hospitalization, Other)
  Sender: FDA-Public Use
  Company Number: FR-PFIZER INC-2018477308

PATIENT
  Age: 19 Year
  Sex: Female

DRUGS (4)
  1. COCAINE [Suspect]
     Active Substance: COCAINE
     Dosage: 0.5 G, SINGLE
     Dates: start: 20180919, end: 20180920
  2. LYRICA [Suspect]
     Active Substance: PREGABALIN
     Dosage: 1000 MG, SINGLE (10 DF)
     Route: 048
     Dates: start: 20180919, end: 20180920
  3. ALCOHOL. [Suspect]
     Active Substance: ALCOHOL
     Dosage: UNK
     Route: 048
     Dates: start: 20180919, end: 20180920
  4. CANNABIS [Suspect]
     Active Substance: CANNABIS SATIVA SUBSP. INDICA TOP
     Dosage: UNK
     Route: 055
     Dates: start: 20180919, end: 20180920

REACTIONS (2)
  - Tonic clonic movements [Recovered/Resolved]
  - Drug abuse [Recovered/Resolved]

NARRATIVE: CASE EVENT DATE: 20180919
